FAERS Safety Report 4354010-3 (Version None)
Quarter: 2004Q2

REPORT INFORMATION
  Report Type: 
  Country: None (occurrence: None)
  Receive Date: 20040503
  Receipt Date: 20040422
  Transmission Date: 20050107
  Serious: Yes (Life-Threatening, Hospitalization)
  Sender: FDA-Public Use
  Company Number: 200310624BCA

PATIENT
  Age: 84 Year
  Sex: Female
  Weight: 67 kg

DRUGS (3)
  1. MOXIFLOXACIN HCL [Suspect]
     Indication: PNEUMONIA
     Dosage: 400 MG, QD,ORAL
     Route: 048
     Dates: start: 20021129
  2. AZITHROMYCIN [Suspect]
     Indication: PNEUMONIA
     Dosage: 500 MG, TOTAL DAILY, INTRAVENOUS
     Route: 042
     Dates: start: 20021122, end: 20021128
  3. CEFOTAXIME [Concomitant]

REACTIONS (14)
  - ANAEMIA [None]
  - ANGINA PECTORIS [None]
  - ARRHYTHMIA [None]
  - BLOOD IRON DECREASED [None]
  - DIZZINESS [None]
  - ELECTROCARDIOGRAM QT PROLONGED [None]
  - LOSS OF CONSCIOUSNESS [None]
  - NAUSEA [None]
  - PAIN [None]
  - PULMONARY CONGESTION [None]
  - SYNCOPE [None]
  - TORSADE DE POINTES [None]
  - TRANSFERRIN SATURATION DECREASED [None]
  - VOMITING [None]
